FAERS Safety Report 24941012 (Version 1)
Quarter: 2025Q1

REPORT INFORMATION
  Report Type: Report from Study
  Country: US (occurrence: US)
  Receive Date: 20250207
  Receipt Date: 20250207
  Transmission Date: 20250408
  Serious: Yes (Other)
  Sender: ALEXION PHARMACEUTICALS
  Company Number: US-AstraZeneca-CH-00798298A

PATIENT
  Weight: 119.74 kg

DRUGS (2)
  1. ACALABRUTINIB [Suspect]
     Active Substance: ACALABRUTINIB
     Indication: Chronic lymphocytic leukaemia
     Dosage: 100 MILLIGRAM, BID
  2. METOPROLOL [Concomitant]
     Active Substance: METOPROLOL
     Indication: Blood pressure measurement
     Route: 065

REACTIONS (3)
  - Neuropathy peripheral [Not Recovered/Not Resolved]
  - Hypertension [Recovered/Resolved]
  - Peripheral coldness [Unknown]
